FAERS Safety Report 18582184 (Version 1)
Quarter: 2020Q4

REPORT INFORMATION
  Report Type: Spontaneous
  Country: US (occurrence: US)
  Receive Date: 20201203
  Receipt Date: 20201203
  Transmission Date: 20210114
  Serious: Yes (Death)
  Sender: FDA-Public Use
  Company Number: None

PATIENT
  Age: 83 Year
  Sex: Male

DRUGS (4)
  1. LEFLUNOMIDE. [Concomitant]
     Active Substance: LEFLUNOMIDE
  2. VOTRIENT [Suspect]
     Active Substance: PAZOPANIB HYDROCHLORIDE
     Indication: RENAL CANCER
     Route: 048
     Dates: start: 20201106, end: 20201124
  3. METOPROLOL. [Concomitant]
     Active Substance: METOPROLOL
  4. CARVEDILOL. [Concomitant]
     Active Substance: CARVEDILOL

REACTIONS (1)
  - Death [None]

NARRATIVE: CASE EVENT DATE: 20201125
